FAERS Safety Report 8623901-7 (Version None)
Quarter: 2012Q3

REPORT INFORMATION
  Report Type: 
  Country: None (occurrence: None)
  Receive Date: 20120827
  Receipt Date: 20120815
  Transmission Date: 20120928
  Serious: Yes (Hospitalization, Disabling, Other)
  Sender: FDA-Public Use
  Company Number: US-009507513-1206USA04686

PATIENT

DRUGS (4)
  1. FOSAMAX [Suspect]
     Indication: OSTEOPENIA
     Dosage: 35 MG QW
     Dates: start: 20010524
  2. FOSAMAX [Suspect]
     Indication: OSTEOPOROSIS
     Dosage: 5 MG QD
     Route: 048
     Dates: start: 19991014, end: 20010501
  3. FOSAMAX [Suspect]
     Indication: BONE DENSITY DECREASED
     Dosage: 70 MG QW
     Dates: start: 20011126, end: 20080401
  4. FOSAMAX [Suspect]
     Dosage: 70 MG QW
     Route: 048
     Dates: start: 20080405

REACTIONS (45)
  - OPEN REDUCTION OF FRACTURE [None]
  - HYPERCHOLESTEROLAEMIA [None]
  - ADVERSE DRUG REACTION [None]
  - COLECTOMY [None]
  - PLEURAL EFFUSION [None]
  - JOINT SWELLING [None]
  - BALANCE DISORDER [None]
  - LUMBAR RADICULOPATHY [None]
  - CERUMEN IMPACTION [None]
  - OSTEOPOROSIS [None]
  - STRESS FRACTURE [None]
  - METABOLIC ALKALOSIS [None]
  - PAIN IN EXTREMITY [None]
  - FEMUR FRACTURE [None]
  - FISTULA [None]
  - HAEMORRHAGE INTRACRANIAL [None]
  - ABDOMINAL PAIN [None]
  - LEUKOCYTOSIS [None]
  - ANXIETY DISORDER [None]
  - INTERVERTEBRAL DISC DEGENERATION [None]
  - LOW TURNOVER OSTEOPATHY [None]
  - LARGE INTESTINE PERFORATION [None]
  - HIP SURGERY [None]
  - GENERALISED OEDEMA [None]
  - OSTEOARTHRITIS [None]
  - INTERVERTEBRAL DISC PROTRUSION [None]
  - GLAUCOMA [None]
  - COLON POLYPECTOMY [None]
  - HALLUCINATION [None]
  - HYPERKERATOSIS [None]
  - CARDIAC FAILURE CONGESTIVE [None]
  - ANAEMIA POSTOPERATIVE [None]
  - HYPERLIPIDAEMIA [None]
  - DIVERTICULITIS [None]
  - DIABETIC NEUROPATHY [None]
  - MUSCLE STRAIN [None]
  - ATRIAL FIBRILLATION [None]
  - PATHOLOGICAL FRACTURE [None]
  - HYPERTENSION [None]
  - ANAEMIA [None]
  - HEAD INJURY [None]
  - HYPOKALAEMIA [None]
  - FALL [None]
  - COLONIC POLYP [None]
  - CERUMEN REMOVAL [None]
